FAERS Safety Report 15904487 (Version 1)
Quarter: 2019Q1

REPORT INFORMATION
  Report Type: Spontaneous
  Country: US (occurrence: US)
  Receive Date: 20190204
  Receipt Date: 20190204
  Transmission Date: 20190417
  Serious: No
  Sender: FDA-Public Use
  Company Number: US-DRREDDYS-USA/USA/19/0107049

PATIENT
  Age: 66 Year
  Sex: Female
  Weight: 66.3 kg

DRUGS (2)
  1. NUPERCAINAL [Suspect]
     Active Substance: DIBUCAINE
     Indication: THROMBOSIS
  2. NUPERCAINAL [Suspect]
     Active Substance: DIBUCAINE
     Indication: HAEMORRHOIDS
     Dates: start: 20190111

REACTIONS (2)
  - Drug ineffective [Not Recovered/Not Resolved]
  - Product quality issue [Unknown]

NARRATIVE: CASE EVENT DATE: 20190111
